FAERS Safety Report 23208338 (Version 10)
Quarter: 2024Q4

REPORT INFORMATION
  Report Type: Report from Study
  Country: CA (occurrence: CA)
  Receive Date: 20231121
  Receipt Date: 20241218
  Transmission Date: 20250115
  Serious: Yes (Other)
  Sender: TAKEDA
  Company Number: CA-TAKEDA-2022TUS087561

PATIENT
  Age: 54 Year
  Sex: Male

DRUGS (32)
  1. VEDOLIZUMAB [Suspect]
     Active Substance: VEDOLIZUMAB
     Indication: Crohn^s disease
     Dosage: 300 MILLIGRAM
  2. VEDOLIZUMAB [Suspect]
     Active Substance: VEDOLIZUMAB
     Dosage: 300 MILLIGRAM, Q4WEEKS
     Dates: start: 20201119
  3. VEDOLIZUMAB [Suspect]
     Active Substance: VEDOLIZUMAB
     Dosage: 300 MILLIGRAM, Q4WEEKS
  4. VEDOLIZUMAB [Suspect]
     Active Substance: VEDOLIZUMAB
     Dosage: 300 MILLIGRAM, Q4WEEKS
  5. VEDOLIZUMAB [Suspect]
     Active Substance: VEDOLIZUMAB
     Dosage: 300 MILLIGRAM, Q4WEEKS
  6. VEDOLIZUMAB [Suspect]
     Active Substance: VEDOLIZUMAB
     Dosage: 300 MILLIGRAM, Q4WEEKS
  7. VEDOLIZUMAB [Suspect]
     Active Substance: VEDOLIZUMAB
     Dosage: 300 MILLIGRAM, Q4WEEKS
  8. VEDOLIZUMAB [Suspect]
     Active Substance: VEDOLIZUMAB
     Dosage: 300 MILLIGRAM, Q4WEEKS
  9. VEDOLIZUMAB [Suspect]
     Active Substance: VEDOLIZUMAB
     Dosage: 300 MILLIGRAM, Q4WEEKS
  10. VEDOLIZUMAB [Suspect]
     Active Substance: VEDOLIZUMAB
     Dosage: 300 MILLIGRAM, Q4WEEKS
     Dates: end: 20241114
  11. PANTOPRAZOLE SODIUM [Suspect]
     Active Substance: PANTOPRAZOLE SODIUM
     Indication: Product used for unknown indication
     Dosage: 40 MILLIGRAM
  12. LOSARTAN [Concomitant]
     Active Substance: LOSARTAN
     Dosage: 25 MILLIGRAM
  13. GLICLAZIDE [Concomitant]
     Active Substance: GLICLAZIDE
     Dosage: 60 MILLIGRAM
  14. ATIVAN [Concomitant]
     Active Substance: LORAZEPAM
     Dosage: 1 MILLIGRAM
  15. PRAVASTATIN [Concomitant]
     Active Substance: PRAVASTATIN
     Dosage: 40 MILLIGRAM
  16. SYMBICORT [Concomitant]
     Active Substance: BUDESONIDE\FORMOTEROL FUMARATE DIHYDRATE
     Dosage: 200 MICROGRAM
  17. IMODIUM [Concomitant]
     Active Substance: LOPERAMIDE HYDROCHLORIDE
     Dosage: UNK
  18. OZEMPIC [Concomitant]
     Active Substance: SEMAGLUTIDE
     Dosage: UNK
  19. JARDIANCE [Concomitant]
     Active Substance: EMPAGLIFLOZIN
     Dosage: 25 MILLIGRAM
  20. BETAHISTINE [Concomitant]
     Active Substance: BETAHISTINE
     Dosage: 24 MILLIGRAM
  21. SUMATRIPTAN [Concomitant]
     Active Substance: SUMATRIPTAN
     Dosage: 50 MILLIGRAM
  22. DOCUSATE SODIUM [Concomitant]
     Active Substance: DOCUSATE SODIUM
     Dosage: 200 MILLIGRAM
  23. FLUTICASONE [Concomitant]
     Active Substance: FLUTICASONE
     Dosage: 125 MILLIGRAM
  24. ZOPICLONE [Concomitant]
     Active Substance: ZOPICLONE
     Dosage: 7.5 MILLIGRAM
  25. ALBUTEROL [Concomitant]
     Active Substance: ALBUTEROL
     Dosage: 100 MICROGRAM
  26. DOMPERIDONE [Concomitant]
     Active Substance: DOMPERIDONE
     Dosage: 10 MILLIGRAM
  27. BASAGLAR [Concomitant]
     Active Substance: INSULIN GLARGINE
     Dosage: UNK
  28. CHOLESTYRAMINE [Concomitant]
     Active Substance: CHOLESTYRAMINE
     Dosage: 4 GRAM
  29. METAMUCIL [Concomitant]
     Active Substance: PLANTAGO SEED
     Dosage: UNK
  30. TOPIRAMATE [Concomitant]
     Active Substance: TOPIRAMATE
     Dosage: 25 MILLIGRAM
  31. COLESEVELAM [Concomitant]
     Active Substance: COLESEVELAM
     Dosage: 1875 MILLIGRAM
  32. LACTOBACILLUS ACIDOPHILUS [Concomitant]
     Active Substance: LACTOBACILLUS ACIDOPHILUS
     Dosage: UNK

REACTIONS (20)
  - Head discomfort [Recovering/Resolving]
  - Balance disorder [Not Recovered/Not Resolved]
  - Asthenia [Not Recovered/Not Resolved]
  - Anal incontinence [Not Recovered/Not Resolved]
  - Diarrhoea [Unknown]
  - Frequent bowel movements [Recovering/Resolving]
  - Crohn^s disease [Not Recovered/Not Resolved]
  - Abdominal pain [Recovering/Resolving]
  - Vomiting [Recovering/Resolving]
  - Constipation [Not Recovered/Not Resolved]
  - Fatigue [Recovering/Resolving]
  - Lacrimation increased [Not Recovered/Not Resolved]
  - Skin exfoliation [Not Recovered/Not Resolved]
  - Oral mucosal exfoliation [Not Recovered/Not Resolved]
  - Drug ineffective [Not Recovered/Not Resolved]
  - Off label use [Unknown]
  - Anal fistula [Not Recovered/Not Resolved]
  - Insomnia [Not Recovered/Not Resolved]
  - Headache [Not Recovered/Not Resolved]
  - Arthralgia [Not Recovered/Not Resolved]

NARRATIVE: CASE EVENT DATE: 20201119
